FAERS Safety Report 19172482 (Version 1)
Quarter: 2021Q2

REPORT INFORMATION
  Report Type: Spontaneous
  Country: US (occurrence: US)
  Receive Date: 20210422
  Receipt Date: 20210422
  Transmission Date: 20210717
  Serious: Yes (Other)
  Sender: FDA-Public Use
  Company Number: None

PATIENT
  Age: 52 Year
  Sex: Female
  Weight: 102.15 kg

DRUGS (15)
  1. ASPIRIN 81 MG [Concomitant]
     Active Substance: ASPIRIN
  2. HCTZ 12.5 MG [Concomitant]
  3. SUMATRIPTAN 100 MG [Concomitant]
     Active Substance: SUMATRIPTAN
  4. JARDIANCE [Suspect]
     Active Substance: EMPAGLIFLOZIN
     Indication: TYPE 2 DIABETES MELLITUS
     Route: 048
     Dates: start: 20210316, end: 20210406
  5. ATORVASTATIN 20 MG [Concomitant]
     Active Substance: ATORVASTATIN
  6. GABAPENTIN 600 MG [Concomitant]
     Active Substance: GABAPENTIN
  7. METFORMIN [Concomitant]
     Active Substance: METFORMIN HYDROCHLORIDE
  8. VITAMIN B12 [Concomitant]
     Active Substance: CYANOCOBALAMIN
  9. MULTIVITAMIN [Concomitant]
     Active Substance: VITAMINS
  10. NORTRIPTYLINE 25 MG [Concomitant]
  11. OMEPRAZOLE 20 MG [Concomitant]
     Active Substance: OMEPRAZOLE
  12. TIZANIDINE 4 MG [Concomitant]
     Active Substance: TIZANIDINE
  13. CALCIUM?VITAMIN D [Concomitant]
     Active Substance: CALCIUM\VITAMIN D
  14. ORTHP TRI?CYCLEN [Concomitant]
  15. NAPROXEN 250 MG [Concomitant]
     Active Substance: NAPROXEN

REACTIONS (4)
  - Eye pain [None]
  - Skin exfoliation [None]
  - Dry skin [None]
  - Periorbital disorder [None]

NARRATIVE: CASE EVENT DATE: 20210406
